FAERS Safety Report 9964325 (Version 1)
Quarter: 2014Q1

REPORT INFORMATION
  Report Type: Spontaneous
  Country: US (occurrence: US)
  Receive Date: 20140305
  Receipt Date: 20140305
  Transmission Date: 20141002
  Serious: Yes (Other)
  Sender: FDA-Public Use
  Company Number: CHPA2014US003349

PATIENT
  Sex: 0

DRUGS (1)
  1. EXCEDRIN MIGRAINE [Suspect]
     Indication: MIGRAINE
     Route: 048

REACTIONS (4)
  - Hiatus hernia [Unknown]
  - Oesophagitis [Unknown]
  - Gastroenteritis [Unknown]
  - Ileal ulcer [Unknown]
